FAERS Safety Report 22206838 (Version 2)
Quarter: 2023Q4

REPORT INFORMATION
  Report Type: Spontaneous
  Country: GB (occurrence: GB)
  Receive Date: 20230413
  Receipt Date: 20231002
  Transmission Date: 20240109
  Serious: Yes (Hospitalization)
  Sender: FDA-Public Use
  Company Number: None

PATIENT
  Age: 74 Year

DRUGS (14)
  1. EPINEPHRINE BITARTRATE [Suspect]
     Active Substance: EPINEPHRINE BITARTRATE
     Dosage: NA
  2. ASPIRIN [Suspect]
     Active Substance: ASPIRIN
  3. CHOLECALCIFEROL [Suspect]
     Active Substance: CHOLECALCIFEROL
     Dosage: 400 UNIT
  4. ESCITALOPRAM [Suspect]
     Active Substance: ESCITALOPRAM OXALATE
     Dosage: NA
  5. FUROSEMIDE [Suspect]
     Active Substance: FUROSEMIDE
     Dosage: NA
  6. GABAPENTIN [Suspect]
     Active Substance: GABAPENTIN
  7. LEVOTHYROXINE [Suspect]
     Active Substance: LEVOTHYROXINE
  8. MEBEVERINE [Suspect]
     Active Substance: MEBEVERINE
     Dosage: NA
  9. METFORMIN [Suspect]
     Active Substance: METFORMIN HYDROCHLORIDE
  10. OMEPRAZOLE [Suspect]
     Active Substance: OMEPRAZOLE
  11. OXYCODONE [Suspect]
     Active Substance: OXYCODONE
  12. ACETAMINOPHEN [Suspect]
     Active Substance: ACETAMINOPHEN
  13. ROSUVASTATIN [Suspect]
     Active Substance: ROSUVASTATIN
  14. ALENDRONIC ACID [Suspect]
     Active Substance: ALENDRONIC ACID
     Dosage: 70MG TABS WEEKLY SUNDAYS

REACTIONS (3)
  - Accidental overdose [Recovered/Resolved]
  - Confusional state [Unknown]
  - Somnolence [Unknown]
